FAERS Safety Report 18409278 (Version 1)
Quarter: 2020Q4

REPORT INFORMATION
  Report Type: Spontaneous
  Country: FR (occurrence: FR)
  Receive Date: 20201021
  Receipt Date: 20201021
  Transmission Date: 20210114
  Serious: Yes (Hospitalization)
  Sender: FDA-Public Use
  Company Number: FR-ROCHE-2698507

PATIENT
  Age: 76 Year
  Sex: Male
  Weight: 65.2 kg

DRUGS (2)
  1. ELIQUIS [Suspect]
     Active Substance: APIXABAN
     Indication: ANTICOAGULANT THERAPY
     Route: 048
     Dates: start: 20200915, end: 20200922
  2. XELODA [Suspect]
     Active Substance: CAPECITABINE
     Indication: COLORECTAL ADENOCARCINOMA
     Route: 048
     Dates: start: 20200819, end: 20200922

REACTIONS (3)
  - Haemolytic anaemia [Recovering/Resolving]
  - Thrombocytopenia [Recovered/Resolved]
  - Jaundice [Recovering/Resolving]

NARRATIVE: CASE EVENT DATE: 20200920
